FAERS Safety Report 6696603-4 (Version None)
Quarter: 2010Q2

REPORT INFORMATION
  Report Type: 
  Country: None (occurrence: None)
  Receive Date: 20100426
  Receipt Date: 20100416
  Transmission Date: 20101027
  Serious: Yes (Hospitalization)
  Sender: FDA-Public Use
  Company Number: A0811049B

PATIENT
  Sex: Female
  Weight: 71.2 kg

DRUGS (4)
  1. BLINDED TRIAL MEDICATION [Suspect]
     Indication: THROMBOCYTOPENIA
     Route: 048
     Dates: start: 20090520, end: 20091216
  2. PEGASYS [Suspect]
     Indication: HEPATITIS C
     Dosage: 180MCG WEEKLY
     Route: 058
     Dates: start: 20090521, end: 20091211
  3. COPEGUS [Suspect]
     Indication: HEPATITIS C
     Route: 048
     Dates: start: 20090520, end: 20091216
  4. ELTROMBOPAG [Suspect]
     Indication: THROMBOCYTOPENIA
     Route: 048
     Dates: start: 20090422, end: 20090519

REACTIONS (8)
  - ANAEMIA [None]
  - ASCITES [None]
  - DIARRHOEA [None]
  - GASTROINTESTINAL HAEMORRHAGE [None]
  - GENERAL PHYSICAL HEALTH DETERIORATION [None]
  - HEPATIC CIRRHOSIS [None]
  - PERITONITIS BACTERIAL [None]
  - PORTAL HYPERTENSIVE GASTROPATHY [None]
